FAERS Safety Report 6129931-1 (Version None)
Quarter: 2009Q1

REPORT INFORMATION
  Report Type: 
  Country: None (occurrence: None)
  Receive Date: 20090324
  Receipt Date: 20090312
  Transmission Date: 20090719
  Serious: Yes (Hospitalization, Other)
  Sender: FDA-Public Use
  Company Number: US-PFIZER INC-2005147251

PATIENT
  Sex: Female
  Weight: 55.102 kg

DRUGS (3)
  1. NORVASC [Suspect]
     Route: 048
     Dates: start: 20030901
  2. AVAPRO [Concomitant]
     Dosage: UNK
  3. TOPROL-XL [Concomitant]

REACTIONS (9)
  - BLOOD GLUCOSE DECREASED [None]
  - COUGH [None]
  - FATIGUE [None]
  - GALLBLADDER OPERATION [None]
  - NASOPHARYNGITIS [None]
  - OEDEMA PERIPHERAL [None]
  - OXYGEN SATURATION DECREASED [None]
  - PROTHROMBIN TIME ABNORMAL [None]
  - WEIGHT DECREASED [None]
